FAERS Safety Report 8260180-7 (Version None)
Quarter: 2012Q2

REPORT INFORMATION
  Report Type: 
  Country: None (occurrence: None)
  Receive Date: 20120404
  Receipt Date: 20120326
  Transmission Date: 20120825
  Serious: Yes (Death, Hospitalization, Other)
  Sender: FDA-Public Use
  Company Number: JP-BRISTOL-MYERS SQUIBB COMPANY-16465023

PATIENT
  Age: 87 Year
  Sex: Male

DRUGS (10)
  1. ZETIA [Concomitant]
  2. LOSARTAN POTASSIUM [Concomitant]
  3. RABEPRAZOLE SODIUM [Concomitant]
  4. JANUVIA [Concomitant]
  5. EPADEL [Concomitant]
  6. TAMSULOSIN HCL [Concomitant]
  7. METFORMIN HCL [Suspect]
     Indication: TYPE 2 DIABETES MELLITUS
     Route: 048
  8. BISACODYL [Suspect]
     Indication: CONSTIPATION
  9. DUTASTERIDE [Concomitant]
  10. GOKUMISIN [Concomitant]

REACTIONS (5)
  - CONSTIPATION [None]
  - SEPTIC SHOCK [None]
  - MESENTERIC ARTERY THROMBOSIS [None]
  - LACTIC ACIDOSIS [None]
  - DIARRHOEA [None]
